FAERS Safety Report 13132459 (Version 1)
Quarter: 2017Q1

REPORT INFORMATION
  Report Type: Spontaneous
  Country: US (occurrence: US)
  Receive Date: 20170120
  Receipt Date: 20170120
  Transmission Date: 20170428
  Serious: Yes (Other)
  Sender: FDA-Public Use
  Company Number: GXBR2017US000525

PATIENT
  Sex: Female
  Weight: 69.39 kg

DRUGS (1)
  1. GLATOPA [Suspect]
     Active Substance: GLATIRAMER ACETATE
     Indication: MULTIPLE SCLEROSIS
     Dosage: 20 MG, QD
     Route: 065

REACTIONS (4)
  - Neuralgia [Recovered/Resolved]
  - Crying [Unknown]
  - Cardiac flutter [Recovered/Resolved]
  - Injection site pain [Recovered/Resolved]
